FAERS Safety Report 6810111-9 (Version None)
Quarter: 2010Q2

REPORT INFORMATION
  Report Type: 
  Country: None (occurrence: None)
  Receive Date: 20100630
  Receipt Date: 20100618
  Transmission Date: 20101027
  Serious: Yes (Other)
  Sender: FDA-Public Use
  Company Number: US-JNJFOC-20100407736

PATIENT
  Sex: Female
  Weight: 42.64 kg

DRUGS (6)
  1. REMICADE [Suspect]
     Indication: CROHN'S DISEASE
     Route: 042
  2. REMICADE [Suspect]
     Route: 042
  3. REMICADE [Suspect]
     Route: 042
  4. REMICADE [Suspect]
     Indication: INFLAMMATORY BOWEL DISEASE
     Route: 042
  5. REMICADE [Suspect]
     Route: 042
  6. REMICADE [Suspect]
     Route: 042

REACTIONS (7)
  - CHEST DISCOMFORT [None]
  - DEMYELINATION [None]
  - HEADACHE [None]
  - HORNER'S SYNDROME [None]
  - INFUSION RELATED REACTION [None]
  - MUSCULOSKELETAL DISCOMFORT [None]
  - OROPHARYNGEAL DISCOMFORT [None]
